FAERS Safety Report 12620936 (Version 1)
Quarter: 2016Q3

REPORT INFORMATION
  Report Type: Spontaneous
  Country: US (occurrence: None)
  Receive Date: 20160803
  Receipt Date: 20160803
  Transmission Date: 20161109
  Serious: No
  Sender: FDA-Public Use
  Company Number: None

PATIENT

DRUGS (1)
  1. INSULIN [Suspect]
     Active Substance: INSULIN NOS

REACTIONS (1)
  - Product label confusion [None]

NARRATIVE: CASE EVENT DATE: 2016
